FAERS Safety Report 18575007 (Version 1)
Quarter: 2020Q4

REPORT INFORMATION
  Report Type: Spontaneous
  Country: FR (occurrence: FR)
  Receive Date: 20201203
  Receipt Date: 20201203
  Transmission Date: 20210114
  Serious: Yes (Hospitalization)
  Sender: FDA-Public Use
  Company Number: FR-PFIZER INC-2020468679

PATIENT
  Age: 57 Year
  Sex: Female

DRUGS (2)
  1. TRIFLUCAN [Suspect]
     Active Substance: FLUCONAZOLE
     Indication: OTITIS MEDIA
     Dosage: 200 MG, SINGLE
     Route: 048
     Dates: start: 201802, end: 201802
  2. AUGMENTINE [AMOXICILLIN;CLAVULANIC ACID] [Suspect]
     Active Substance: AMOXICILLIN\CLAVULANIC ACID
     Indication: OTITIS MEDIA
     Dosage: 1 G, SINGLE
     Route: 048
     Dates: start: 201802, end: 201802

REACTIONS (6)
  - Dysphagia [Recovered/Resolved]
  - Tremor [Recovered/Resolved]
  - Limited symptom panic attack [Recovered/Resolved]
  - Rash erythematous [Recovered/Resolved]
  - Throat tightness [Recovered/Resolved]
  - Fatigue [Recovered/Resolved]

NARRATIVE: CASE EVENT DATE: 201802
